FAERS Safety Report 10270908 (Version 3)
Quarter: 2014Q4

REPORT INFORMATION
  Report Type: Spontaneous
  Country: US (occurrence: None)
  Receive Date: 20140627
  Receipt Date: 20141124
  Transmission Date: 20150528
  Serious: Yes (Other)
  Sender: FDA-Public Use
  Company Number: 2014-US-003509

PATIENT
  Age: 60 Year
  Sex: Female
  Weight: 107 kg

DRUGS (19)
  1. CYTOMEL (LIOTHYRONINE SODIUM) [Concomitant]
  2. NEXIUM [Concomitant]
     Active Substance: ESOMEPRAZOLE MAGNESIUM
  3. MUCINEX (GUAIFENESIN) [Concomitant]
  4. SERTRALINE [Concomitant]
     Active Substance: SERTRALINE HYDROCHLORIDE
  5. TOPAMAX [Concomitant]
     Active Substance: TOPIRAMATE
  6. ZESTRIL (LISINOPRIL) [Concomitant]
  7. ALLEGRA (FEFOFENADINE HYDROCHLORIDE) [Concomitant]
  8. SINGULAIR  (MONTELUKAST SODIUM) [Concomitant]
  9. FLONASE [Concomitant]
     Active Substance: FLUTICASONE PROPIONATE
  10. PRAVASTATIN (PRAVASTATIN SODIUM) [Concomitant]
  11. RITALIN (METHYLPHENIDATE HYDROCHLORIDE) [Concomitant]
     Active Substance: METHYLPHENIDATE HYDROCHLORIDE
  12. ADVAIR DISKUS (FLUTICASONE PROPIONATE, SALMETEROL XINAFOATE) [Concomitant]
  13. METFORMIN [Concomitant]
     Active Substance: METFORMIN HYDROCHLORIDE
  14. SUBOXONE (BUPRENORPHINE HYDROCHLORIDE, NALOXONE HYDROCHLORIDE) [Concomitant]
  15. OXYCODONE (OXYCODONE HYDROCHLORIDE) (OXYCODONE) [Suspect]
     Active Substance: OXYCODONE
     Indication: PAIN
  16. TIROSINT (LEVOTHYROXINE SODIUM) [Concomitant]
  17. ALBUTEROL (SALBUTAMOL SULFATE) [Concomitant]
  18. XYREM [Suspect]
     Active Substance: SODIUM OXYBATE
     Indication: NARCOLEPSY
     Route: 048
     Dates: start: 201308, end: 2014
  19. LAMICTAL [Concomitant]
     Active Substance: LAMOTRIGINE

REACTIONS (18)
  - Lumbar vertebral fracture [None]
  - Feeling abnormal [None]
  - Hearing aid user [None]
  - Fatigue [None]
  - Insomnia [None]
  - Constipation [None]
  - Fall [None]
  - Pelvic pain [None]
  - Pain [None]
  - Sedation [None]
  - Hangover [None]
  - Ulcer [None]
  - Arthralgia [None]
  - Dysarthria [None]
  - Back injury [None]
  - Meniscus injury [None]
  - Crying [None]
  - Intentional product misuse [None]

NARRATIVE: CASE EVENT DATE: 20140212
